FAERS Safety Report 7863235-1 (Version None)
Quarter: 2011Q4

REPORT INFORMATION
  Report Type: 
  Country: None (occurrence: None)
  Receive Date: 20111027
  Receipt Date: 20101130
  Transmission Date: 20120403
  Serious: No
  Sender: FDA-Public Use
  Company Number: US-AMGEN-USASP2010007041

PATIENT
  Age: 33 Month
  Sex: Female

DRUGS (1)
  1. ENBREL [Suspect]
     Indication: JUVENILE ARTHRITIS
     Dosage: 5 MG, QWK
     Dates: start: 20101022

REACTIONS (4)
  - COUGH [None]
  - RHINORRHOEA [None]
  - SNEEZING [None]
  - EAR INFECTION [None]
